FAERS Safety Report 7308716-4 (Version None)
Quarter: 2011Q1

REPORT INFORMATION
  Report Type: 
  Country: None (occurrence: None)
  Receive Date: 20110223
  Receipt Date: 20110210
  Transmission Date: 20110831
  Serious: Yes (Other)
  Sender: FDA-Public Use
  Company Number: PHHY2010US77922

PATIENT
  Sex: Female

DRUGS (3)
  1. TYLENOL [Concomitant]
  2. TASIGNA [Suspect]
     Indication: CHRONIC MYELOID LEUKAEMIA
     Dosage: 300 MG, BID
     Route: 048
     Dates: start: 20101015
  3. ZOLOFT [Concomitant]

REACTIONS (6)
  - ABSCESS [None]
  - HYPOAESTHESIA FACIAL [None]
  - HEADACHE [None]
  - ALOPECIA [None]
  - STAPHYLOCOCCAL SKIN INFECTION [None]
  - FATIGUE [None]
